FAERS Safety Report 9006478 (Version 1)
Quarter: 2012Q4

REPORT INFORMATION
  Report Type: Spontaneous
  Country: US (occurrence: None)
  Receive Date: 20121227
  Receipt Date: 20121227
  Transmission Date: 20130627
  Serious: Yes (Other)
  Sender: FDA-Public Use
  Company Number: 2012-22618

PATIENT
  Age: 43 Year
  Sex: Male
  Weight: 82 kg

DRUGS (1)
  1. DICLOFENAC SODIUM [Suspect]
     Indication: SHOULDER DISLOCATION
     Route: 048
     Dates: start: 20121129

REACTIONS (8)
  - Eye swelling [None]
  - Dyspnoea [None]
  - Skin irritation [None]
  - Hypersensitivity [None]
  - Nausea [None]
  - Rash macular [None]
  - Pruritus [None]
  - Malaise [None]
